FAERS Safety Report 16041364 (Version 1)
Quarter: 2019Q1

REPORT INFORMATION
  Report Type: Report from Study
  Country: JP (occurrence: JP)
  Receive Date: 20190306
  Receipt Date: 20190306
  Transmission Date: 20190418
  Serious: Yes (Hospitalization, Other)
  Sender: FDA-Public Use
  Company Number: JP-BRISTOL-MYERS SQUIBB COMPANY-BMS-2018-124649

PATIENT
  Age: 71 Year
  Sex: Male
  Weight: 48.5 kg

DRUGS (38)
  1. NIVOLUMAB [Suspect]
     Active Substance: NIVOLUMAB
     Indication: RECTAL CANCER
     Dosage: 140.4 MG, UNK
     Route: 041
     Dates: start: 20180418, end: 20181113
  2. BIO-THREE [Concomitant]
     Active Substance: HERBALS
     Indication: PRODUCT USED FOR UNKNOWN INDICATION
     Dosage: 2 DF, Q8H
     Route: 048
  3. MAGMITT [Concomitant]
     Active Substance: MAGNESIUM OXIDE
     Indication: PRODUCT USED FOR UNKNOWN INDICATION
     Dosage: 330 MG, PRN
     Route: 048
  4. LOCOID [Concomitant]
     Active Substance: HYDROCORTISONE BUTYRATE
     Indication: RASH
     Route: 065
  5. HEPARINOID [Concomitant]
     Active Substance: CHONDROITIN SULFATE (BOVINE)
     Indication: RASH
     Dosage: AS APPROPRIATE(PROPER QUANTITY)
     Route: 061
  6. LORAZEPAM TOWA [Concomitant]
     Indication: NAUSEA
     Dosage: 1.0 MG, PRN
     Route: 048
     Dates: start: 20190116
  7. MUCOSOLVAN [Concomitant]
     Active Substance: AMBROXOL HYDROCHLORIDE
     Indication: PRODUCT USED FOR UNKNOWN INDICATION
     Dosage: 45 MG, EVERYDAY
     Route: 048
  8. ANTEBATE [Concomitant]
     Active Substance: BETAMETHASONE DIPROPIONATE
     Indication: RASH
     Dosage: AS APPROPRIATE(PROPER QUANTITY)
     Route: 061
  9. LEVOFLOXACIN HEMIHYDRATE [Concomitant]
     Active Substance: LEVOFLOXACIN
     Indication: PNEUMONIA
     Dosage: 500 MG, EVERYDAY
     Route: 048
  10. FUROSEMIDE. [Concomitant]
     Active Substance: FUROSEMIDE
     Indication: RECTAL CANCER
     Dosage: 20 MG, QD
     Route: 048
     Dates: start: 20180425
  11. AMLODIPINE [Concomitant]
     Active Substance: AMLODIPINE BESYLATE
     Indication: HYPERTENSION
     Dosage: 10 MG, QD
     Route: 048
  12. BIO-THREE [Concomitant]
     Active Substance: HERBALS
     Indication: CONSTIPATION
     Dosage: 2 TAB, TID
     Route: 048
  13. ANTEBATE [Concomitant]
     Active Substance: BETAMETHASONE DIPROPIONATE
     Indication: RASH
     Dosage: AS APPROPRIATE(PROPER QUANTITY)
     Route: 061
  14. METFORMIN HYDROCHLORIDE. [Suspect]
     Active Substance: METFORMIN HYDROCHLORIDE
     Indication: PRODUCT USED FOR UNKNOWN INDICATION
     Dosage: 500 MG, Q8H (THERAPY HAS BEEN SUSPENDED AFTER THE LUNCH ON 26 DEC 2018.)
     Route: 048
     Dates: start: 20180418, end: 20181226
  15. FUROSEMIDE. [Concomitant]
     Active Substance: FUROSEMIDE
     Indication: HYPOVITAMINOSIS
     Dosage: 1 DF, EVERYDAY
     Route: 042
     Dates: start: 20190124
  16. AMLODIPINE [Concomitant]
     Active Substance: AMLODIPINE BESYLATE
     Indication: PRODUCT USED FOR UNKNOWN INDICATION
     Dosage: 10 MG, EVERYDAY
     Route: 048
  17. OMEPRAZOLE. [Concomitant]
     Active Substance: OMEPRAZOLE
     Indication: GASTROOESOPHAGEAL REFLUX DISEASE
     Dosage: 20 MG, EVERYDAY
     Route: 048
  18. SOFT SANTEAR [Concomitant]
     Indication: DRY EYE
     Dosage: UNK, PRN
     Route: 047
  19. LOXOPROFEN [Concomitant]
     Active Substance: LOXOPROFEN
     Indication: PRODUCT USED FOR UNKNOWN INDICATION
     Dosage: 60 MG, PRN
     Route: 048
  20. FULCALIQ [Concomitant]
     Active Substance: AMINO ACIDS\CARBOHYDRATES\ELECTROLYTES NOS\VITAMINS
     Indication: DECREASED APPETITE
     Dosage: 0.5 DF, Q12H
     Route: 042
     Dates: start: 20190124
  21. FUROSEMIDE MITA [Concomitant]
     Indication: MALIGNANT NEOPLASM PROGRESSION
     Dosage: 20 MG, Q12H
     Route: 041
     Dates: start: 20190124
  22. FUROSEMIDE MITA [Concomitant]
     Indication: PRODUCT USED FOR UNKNOWN INDICATION
     Dosage: UNK
     Route: 048
     Dates: start: 20180425
  23. URSODEOXYCHOLIC ACID [Concomitant]
     Active Substance: URSODIOL
     Indication: PRODUCT USED FOR UNKNOWN INDICATION
     Dosage: 100 MG, Q8H
     Route: 048
  24. LOCOID [Concomitant]
     Active Substance: HYDROCORTISONE BUTYRATE
     Indication: PYREXIA
     Dosage: AS APPROPRIATE(PROPER QUANTITY)
     Route: 061
  25. THYRADIN S [Concomitant]
     Active Substance: LEVOTHYROXINE SODIUM
     Indication: PRODUCT USED FOR UNKNOWN INDICATION
     Dosage: 75 MG, EVERYDAY
     Route: 048
  26. SOLU-CORTEF [Concomitant]
     Active Substance: HYDROCORTISONE SODIUM SUCCINATE
     Indication: ADRENOCORTICOTROPIC HORMONE DEFICIENCY
     Dosage: 50 MG, Q12H
     Route: 041
     Dates: start: 20190125
  27. THYRADIN S [Concomitant]
     Active Substance: LEVOTHYROXINE SODIUM
     Indication: SILENT THYROIDITIS
     Dosage: 75 ?G, QD
     Route: 048
  28. LEVOFLOXACIN HEMIHYDRATE [Concomitant]
     Active Substance: LEVOFLOXACIN
     Indication: PRODUCT USED FOR UNKNOWN INDICATION
     Dosage: 500 MG, EVERYDAY
     Route: 048
  29. METFORMIN HYDROCHLORIDE. [Suspect]
     Active Substance: METFORMIN HYDROCHLORIDE
     Indication: RECTAL CANCER
     Dosage: 500 MG, TID
     Route: 065
     Dates: start: 20180418
  30. OMEPRAZOLE. [Concomitant]
     Active Substance: OMEPRAZOLE
     Indication: GASTROOESOPHAGEAL REFLUX DISEASE
     Dosage: 20 MG, QD
     Route: 048
  31. MUCOSOLVAN L [Concomitant]
     Active Substance: AMBROXOL HYDROCHLORIDE
     Indication: SPUTUM RETENTION
     Dosage: 45 MG, QD
     Route: 048
  32. URSODEOXYCHOLIC ACID [Concomitant]
     Active Substance: URSODIOL
     Indication: RECTAL CANCER
     Dosage: 100 MG, TID
     Route: 048
  33. LOCOID [Concomitant]
     Active Substance: HYDROCORTISONE BUTYRATE
     Indication: RASH
     Dosage: AS APPROPRIATE(PROPER QUANTITY)
     Route: 061
  34. HEPARINOID [Concomitant]
     Active Substance: CHONDROITIN SULFATE (BOVINE)
     Indication: RASH
     Dosage: AS APPROPRIATE(PROPER QUANTITY)
     Route: 061
  35. NIVOLUMAB [Suspect]
     Active Substance: NIVOLUMAB
     Indication: PRODUCT USED FOR UNKNOWN INDICATION
     Dosage: 154.8 MG, UNK
     Route: 041
     Dates: start: 20181114
  36. MAGMITT [Concomitant]
     Active Substance: MAGNESIUM OXIDE
     Indication: CONSTIPATION
     Dosage: 330 MG, PRN
     Route: 048
  37. LOXOPROFEN [Concomitant]
     Active Substance: LOXOPROFEN
     Indication: RECTAL CANCER
     Dosage: 60 MG, PRN
     Route: 048
  38. MUCOSOLVAN [Concomitant]
     Active Substance: AMBROXOL HYDROCHLORIDE
     Indication: SPUTUM RETENTION
     Dosage: 45 MG, EVERYDAY
     Route: 048

REACTIONS (2)
  - Cholangitis [Not Recovered/Not Resolved]
  - Jaundice cholestatic [Not Recovered/Not Resolved]

NARRATIVE: CASE EVENT DATE: 20190226
